FAERS Safety Report 6592990-6 (Version None)
Quarter: 2010Q1

REPORT INFORMATION
  Report Type: 
  Country: None (occurrence: None)
  Receive Date: 20100222
  Receipt Date: 20100210
  Transmission Date: 20100710
  Serious: Yes (Death, Life-Threatening, Hospitalization)
  Sender: FDA-Public Use
  Company Number: JP-BRISTOL-MYERS SQUIBB COMPANY-14618953

PATIENT
  Age: 67 Year
  Sex: Male

DRUGS (10)
  1. SPRYCEL [Suspect]
     Indication: CHRONIC MYELOID LEUKAEMIA
     Dosage: 19MAR09-20MAR09.(70 MG X2/D)DURATION: 2 DAYS ; 21MAR09-UNK (50MG X2/D); 10JUL-14AUG09
     Route: 048
     Dates: start: 20090319, end: 20090814
  2. FILDESIN [Suspect]
     Indication: CHRONIC MYELOID LEUKAEMIA
     Route: 042
     Dates: start: 20090403, end: 20090417
  3. PREDONINE [Concomitant]
     Route: 048
     Dates: start: 20081031, end: 20090418
  4. ITRIZOLE [Concomitant]
     Route: 048
     Dates: end: 20090331
  5. BAKTAR [Concomitant]
     Dosage: 1 DF = 1 TABLET
     Route: 048
     Dates: end: 20090418
  6. VINCRISTINE [Concomitant]
     Dates: start: 20081031, end: 20090304
  7. IMATINIB MESILATE [Concomitant]
     Dates: start: 20080822, end: 20090318
  8. ALLOPURINOL [Concomitant]
     Route: 048
     Dates: start: 20090403, end: 20090418
  9. MERCAPTOPURINE [Concomitant]
     Indication: CHRONIC MYELOID LEUKAEMIA
     Dosage: MERCAPTOPURINE HYDRATE POWDER08MAY09-UNK;10JUL09TO14AUG09
     Route: 048
     Dates: start: 20090508, end: 20090814
  10. FILGRASTIM [Concomitant]
     Dosage: INJ
     Route: 058
     Dates: start: 20090519, end: 20090621

REACTIONS (18)
  - ALANINE AMINOTRANSFERASE INCREASED [None]
  - ANAEMIA [None]
  - ASPARTATE AMINOTRANSFERASE INCREASED [None]
  - BLOOD ALKALINE PHOSPHATASE INCREASED [None]
  - BRONCHOPULMONARY ASPERGILLOSIS [None]
  - DECREASED APPETITE [None]
  - DIARRHOEA [None]
  - FEBRILE NEUTROPENIA [None]
  - GASTROINTESTINAL HAEMORRHAGE [None]
  - GENERALISED OEDEMA [None]
  - HYPERBILIRUBINAEMIA [None]
  - MALIGNANT NEOPLASM PROGRESSION [None]
  - NAUSEA [None]
  - NEUTROPHIL COUNT DECREASED [None]
  - PLATELET COUNT DECREASED [None]
  - PNEUMONIA [None]
  - SEPSIS [None]
  - WHITE BLOOD CELL COUNT DECREASED [None]
